FAERS Safety Report 5639225-6 (Version None)
Quarter: 2008Q1

REPORT INFORMATION
  Report Type: 
  Country: None (occurrence: None)
  Receive Date: 20080226
  Receipt Date: 20080218
  Transmission Date: 20080703
  Serious: Yes (Hospitalization)
  Sender: FDA-Public Use
  Company Number: DE-BOEHRINGER INGELHEIM GMBH, GERMANY-2008-DE-01033DE

PATIENT
  Sex: Female

DRUGS (24)
  1. ATROVENT [Suspect]
     Indication: CHRONIC OBSTRUCTIVE PULMONARY DISEASE
     Route: 055
     Dates: start: 20050308
  2. FERRO SANOL DUODENAL [Suspect]
     Indication: THERAPEUTIC PROCEDURE
     Route: 048
     Dates: start: 20050212, end: 20050314
  3. ARLEVERT [Suspect]
     Indication: DIZZINESS
     Route: 048
     Dates: start: 20050212, end: 20050316
  4. TRAMAL [Suspect]
     Indication: PAIN
     Route: 048
     Dates: start: 20050212
  5. TRAMAL [Suspect]
     Route: 048
     Dates: start: 20050212
  6. PENTAERYTHRITOL TETRANITRATE [Suspect]
     Indication: CARDIAC FAILURE
     Route: 048
     Dates: start: 20050212
  7. EMBOLEX [Suspect]
     Indication: THROMBOSIS PROPHYLAXIS
     Route: 058
     Dates: start: 20050225
  8. CHLORALHYDRAT [Suspect]
     Indication: SLEEP DISORDER
     Route: 048
     Dates: start: 20050225
  9. NEXIUM [Suspect]
     Indication: PROPHYLAXIS
     Route: 048
     Dates: start: 20050225
  10. METOPROLOL SUCCINATE [Suspect]
     Indication: CARDIAC FAILURE
     Route: 048
     Dates: start: 20050303
  11. MEGALAC [Suspect]
     Indication: DYSPEPSIA
     Route: 048
     Dates: start: 20050305, end: 20050305
  12. MCP [Suspect]
     Indication: NAUSEA
     Route: 048
     Dates: start: 20050306, end: 20050307
  13. BERLOSIN [Suspect]
     Indication: PAIN
     Route: 048
     Dates: start: 20050306, end: 20050309
  14. ZITHROMAX [Suspect]
     Indication: BRONCHITIS
     Route: 048
     Dates: start: 20050308, end: 20050310
  15. ACETYCYSTEIN BT [Suspect]
     Indication: CHRONIC OBSTRUCTIVE PULMONARY DISEASE
     Route: 048
     Dates: start: 20050308
  16. SULTANOL [Suspect]
     Indication: CHRONIC OBSTRUCTIVE PULMONARY DISEASE
     Route: 055
     Dates: start: 20050308
  17. KLACID [Suspect]
     Indication: BRONCHITIS
     Dosage: 2-0-2, 1-0-0
     Route: 048
     Dates: start: 20050315, end: 20050316
  18. MULTI-VITAMIN [Concomitant]
     Indication: THERAPEUTIC PROCEDURE
     Route: 048
     Dates: start: 20050212, end: 20050224
  19. MULTI-VITAMIN [Concomitant]
     Route: 048
     Dates: start: 20050226
  20. THEOPHYLLINE [Concomitant]
     Indication: CHRONIC OBSTRUCTIVE PULMONARY DISEASE
     Route: 048
     Dates: start: 20050310, end: 20050316
  21. ACETAMINOPHEN [Concomitant]
     Indication: PYREXIA
     Dosage: 0-1-1, 1-1-1
     Route: 054
     Dates: start: 20050310
  22. KAMILLENMUNDSPUELUNG [Concomitant]
     Indication: STOMATITIS
     Dates: start: 20050311
  23. TORSEMIDE [Concomitant]
     Indication: CARDIAC FAILURE
     Route: 048
     Dates: start: 20050311
  24. KALINOR [Concomitant]
     Indication: HYPOKALAEMIA
     Route: 048
     Dates: start: 20050314

REACTIONS (1)
  - STEVENS-JOHNSON SYNDROME [None]
